FAERS Safety Report 5581314-9 (Version None)
Quarter: 2007Q4

REPORT INFORMATION
  Report Type: 
  Country: None (occurrence: None)
  Receive Date: 20071226
  Receipt Date: 20071214
  Transmission Date: 20080405
  Serious: Yes (Other)
  Sender: FDA-Public Use
  Company Number: 200712622

PATIENT
  Age: 46 Year
  Sex: Female

DRUGS (1)
  1. VIVAGLOBIN [Suspect]
     Dosage: 114 DAILY SC; 114 ML Q1W SC
     Route: 058
     Dates: start: 20071219

REACTIONS (3)
  - ERYSIPELAS [None]
  - INJECTION SITE ERYTHEMA [None]
  - INJECTION SITE SWELLING [None]
